FAERS Safety Report 22869364 (Version 3)
Quarter: 2024Q2

REPORT INFORMATION
  Report Type: Report from Study
  Country: MX (occurrence: MX)
  Receive Date: 20230826
  Receipt Date: 20240402
  Transmission Date: 20240716
  Serious: Yes (Other)
  Sender: FDA-Public Use
  Company Number: MX-002147023-NVSC2023MX184936

PATIENT
  Age: 69 Year
  Sex: Male
  Weight: 74 kg

DRUGS (7)
  1. ENTRESTO [Suspect]
     Active Substance: SACUBITRIL\VALSARTAN
     Indication: Hypertension
     Dosage: 0.5 DOSAGE FORM, Q12H (EVERY 12 HOURS / IN THE MORNING AND AT NIGHT (7:00PM)
     Route: 048
     Dates: start: 202303
  2. ENTRESTO [Suspect]
     Active Substance: SACUBITRIL\VALSARTAN
     Indication: Cardiac disorder
     Dosage: 1 DOSAGE FORM, QD
     Route: 048
     Dates: start: 202309, end: 202312
  3. ENTRESTO [Suspect]
     Active Substance: SACUBITRIL\VALSARTAN
     Dosage: 0.5 DOSAGE FORM
     Route: 048
     Dates: start: 202312, end: 202402
  4. ENTRESTO [Suspect]
     Active Substance: SACUBITRIL\VALSARTAN
     Dosage: 0.25 DOSAGE FORM
     Route: 048
     Dates: start: 202402
  5. NEBIVOLOL HYDROCHLORIDE [Concomitant]
     Active Substance: NEBIVOLOL HYDROCHLORIDE
     Indication: Cardiac disorder
     Dosage: 1 DOSAGE FORM, QD (10/10MG)
     Route: 048
     Dates: start: 2015, end: 202303
  6. NEBIVOLOL HYDROCHLORIDE [Concomitant]
     Active Substance: NEBIVOLOL HYDROCHLORIDE
     Dosage: 0.5 DOSAGE FORM (10/10MG) AT NIGHT
     Route: 065
     Dates: start: 202303
  7. ASPIRIN\CLOPIDOGREL BISULFATE [Concomitant]
     Active Substance: ASPIRIN\CLOPIDOGREL BISULFATE
     Indication: Cardiac disorder
     Dosage: 1 DOSAGE FORM, QD
     Route: 048
     Dates: start: 2015

REACTIONS (4)
  - Visual impairment [Unknown]
  - Wrong technique in product usage process [Unknown]
  - Product use in unapproved indication [Not Recovered/Not Resolved]
  - Off label use [Unknown]

NARRATIVE: CASE EVENT DATE: 20230301
